FAERS Safety Report 10048099 (Version 2)
Quarter: 2014Q1

REPORT INFORMATION
  Report Type: Spontaneous
  Country: US (occurrence: US)
  Receive Date: 20140331
  Receipt Date: 20140331
  Transmission Date: 20141002
  Serious: Yes (Disabling)
  Sender: FDA-Public Use
  Company Number: US-GE HEALTHCARE MEDICAL DIAGNOSTICS-OSCN-PR-0902S-0119

PATIENT
  Age: 55 Year
  Sex: Female

DRUGS (6)
  1. OMNISCAN [Suspect]
     Indication: ASTHENIA
     Route: 042
     Dates: start: 20050503, end: 20050503
  2. OMNISCAN [Suspect]
     Indication: PRODUCT USED FOR UNKNOWN INDICATION
     Route: 042
     Dates: start: 20050506, end: 20050506
  3. MAGNEVIST [Suspect]
     Indication: HEADACHE
     Route: 042
     Dates: start: 20040612, end: 20040612
  4. MAGNEVIST [Suspect]
     Route: 042
     Dates: start: 20040612, end: 20040612
  5. MAGNEVIST [Suspect]
     Route: 042
     Dates: start: 20041105, end: 20041105
  6. EPOGEN [Concomitant]

REACTIONS (1)
  - Nephrogenic systemic fibrosis [Not Recovered/Not Resolved]
